FAERS Safety Report 11911321 (Version 1)
Quarter: 2016Q1

REPORT INFORMATION
  Report Type: Spontaneous
  Country: FR (occurrence: FR)
  Receive Date: 20160112
  Receipt Date: 20160112
  Transmission Date: 20160526
  Serious: Yes (Death, Other)
  Sender: FDA-Public Use
  Company Number: FR-PFIZER INC-2015476807

PATIENT
  Age: 75 Year
  Sex: Male

DRUGS (8)
  1. PREVISCAN /00789001/ [Concomitant]
     Active Substance: FLUINDIONE
  2. VESICARE [Concomitant]
     Active Substance: SOLIFENACIN SUCCINATE
  3. OGASTORO [Concomitant]
     Active Substance: LANSOPRAZOLE
  4. TARGOCID [Suspect]
     Active Substance: TEICOPLANIN
     Indication: ABSCESS
     Dosage: UNK
     Route: 042
     Dates: start: 20150301, end: 20150314
  5. SEROPLEX [Concomitant]
     Active Substance: ESCITALOPRAM OXALATE
  6. CORTANCYL [Concomitant]
     Active Substance: PREDNISONE
  7. ZYVOXID [Suspect]
     Active Substance: LINEZOLID
     Indication: ABSCESS
     Dosage: UNK
     Route: 042
     Dates: start: 20150323, end: 20150410
  8. LEVOTHYROX [Concomitant]
     Active Substance: LEVOTHYROXINE

REACTIONS (6)
  - Cardio-respiratory arrest [Fatal]
  - Thrombocytopenia [Recovered/Resolved]
  - Anaemia [Recovered/Resolved]
  - Leukopenia [Recovered/Resolved]
  - Ventricular arrhythmia [Fatal]
  - Pancytopenia [Recovered/Resolved]

NARRATIVE: CASE EVENT DATE: 20150409
